FAERS Safety Report 19829421 (Version 3)
Quarter: 2023Q2

REPORT INFORMATION
  Report Type: Spontaneous
  Country: CA (occurrence: CA)
  Receive Date: 20210914
  Receipt Date: 20230623
  Transmission Date: 20230721
  Serious: Yes (Other)
  Sender: FDA-Public Use
  Company Number: CA-SAMSUNG BIOEPIS-SB-2021-21517

PATIENT
  Age: 41 Year
  Sex: Female
  Weight: 60 kg

DRUGS (2)
  1. INFLIXIMAB [Suspect]
     Active Substance: INFLIXIMAB
     Indication: Colitis ulcerative
     Route: 042
  2. AZATHIOPRINE [Concomitant]
     Active Substance: AZATHIOPRINE
     Indication: Product used for unknown indication
     Route: 048

REACTIONS (9)
  - Abdominal pain [Unknown]
  - Anxiety [Unknown]
  - Breast pain [Unknown]
  - Pollakiuria [Unknown]
  - Uterine leiomyoma [Unknown]
  - Condition aggravated [Unknown]
  - COVID-19 [Unknown]
  - In vitro fertilisation [Unknown]
  - Inappropriate schedule of product administration [Unknown]
